FAERS Safety Report 12498038 (Version 2)
Quarter: 2016Q2

REPORT INFORMATION
  Report Type: Other
  Country: DE (occurrence: DE)
  Receive Date: 20160626
  Receipt Date: 20160626
  Transmission Date: 20160815
  Serious: Yes (Other)
  Sender: FDA-Public Use
  Company Number: DE-CIPLA LTD.-2016DE08085

PATIENT

DRUGS (15)
  1. BUPROPION. [Interacting]
     Active Substance: BUPROPION
     Dosage: 300 MG/TG
     Route: 048
     Dates: start: 20130418
  2. MIRTAZAPINE. [Interacting]
     Active Substance: MIRTAZAPINE
     Dosage: 30 MG/TG
     Route: 048
     Dates: start: 20130406, end: 20130505
  3. LITHIUM CARBONATE. [Interacting]
     Active Substance: LITHIUM CARBONATE
     Dosage: 225 MG/TG
     Route: 048
     Dates: start: 20130503
  4. LITHIUM CARBONATE. [Interacting]
     Active Substance: LITHIUM CARBONATE
     Indication: DEPRESSION
     Dosage: 225 MG/TG
     Route: 048
     Dates: start: 20130426, end: 20130428
  5. HCT HEXAL [Interacting]
     Active Substance: HYDROCHLOROTHIAZIDE
     Dosage: 12.5 MG/TG
     Route: 048
  6. L-THYROXINE [Concomitant]
     Active Substance: LEVOTHYROXINE
     Dosage: UNK
     Route: 065
     Dates: start: 20130423
  7. LORAZEPAM. [Concomitant]
     Active Substance: LORAZEPAM
     Dosage: UNK
     Route: 065
     Dates: start: 20130406, end: 20130512
  8. QUETIAPINE. [Interacting]
     Active Substance: QUETIAPINE
     Dosage: 50 MG/TG
     Route: 048
     Dates: start: 20130503, end: 20130624
  9. LITHIUM CARBONATE. [Interacting]
     Active Substance: LITHIUM CARBONATE
     Dosage: 675 MG/TG
     Route: 048
     Dates: start: 20130502, end: 20130502
  10. LITHIUM CARBONATE. [Interacting]
     Active Substance: LITHIUM CARBONATE
     Dosage: 450 MG/TG
     Route: 048
     Dates: start: 20130429, end: 20130501
  11. ZOPICLONE [Concomitant]
     Active Substance: ZOPICLONE
     Dosage: UNK
     Route: 065
     Dates: start: 20130406
  12. PANTOPRAZOLE [Concomitant]
     Active Substance: PANTOPRAZOLE SODIUM
     Dosage: UNK
     Route: 065
     Dates: start: 20130406
  13. RAMIPRIL. [Suspect]
     Active Substance: RAMIPRIL
     Dosage: 1 DF/?
     Route: 065
     Dates: start: 20130411, end: 20130430
  14. CARVEDILOL. [Concomitant]
     Active Substance: CARVEDILOL
     Dosage: UNK
     Route: 065
     Dates: start: 20130409
  15. TRAMAL [Concomitant]
     Active Substance: TRAMADOL
     Dosage: UNK
     Route: 065
     Dates: start: 20130406, end: 20130406

REACTIONS (4)
  - Drug interaction [Unknown]
  - Confusional state [Unknown]
  - Delirium [Unknown]
  - Psychomotor hyperactivity [Unknown]

NARRATIVE: CASE EVENT DATE: 20130503
